FAERS Safety Report 8805120 (Version 1)
Quarter: 2012Q4

REPORT INFORMATION
  Report Type: 
  Country: US (occurrence: US)
  Receive Date: 20120924
  Receipt Date: 20120924
  Transmission Date: 20130627
  Serious: No
  Sender: FDA-Public Use
  Company Number: US-ALLERGAN-1209982US

PATIENT
  Age: 82 Year
  Sex: Female

DRUGS (4)
  1. LUMIGAN� 0.01% [Suspect]
     Indication: INTRAOCULAR PRESSURE ABNORMAL NOS
     Dosage: UNK
  2. CYCLOSPORINE [Suspect]
     Indication: DRUG USE FOR UNKNOWN INDICATION
     Dosage: UNK
     Route: 047
  3. BLOOD PRESSURE PILLS [Concomitant]
     Indication: BLOOD PRESSURE HIGH
  4. STOMACH MEDICINES [Concomitant]
     Indication: DRUG USE FOR UNKNOWN INDICATION

REACTIONS (2)
  - Eye irritation [Unknown]
  - Treatment noncompliance [None]
